FAERS Safety Report 6473729-1 (Version None)
Quarter: 2009Q4

REPORT INFORMATION
  Report Type: 
  Country: None (occurrence: None)
  Receive Date: 20091204
  Receipt Date: 20091125
  Transmission Date: 20100525
  Serious: Yes (Hospitalization)
  Sender: FDA-Public Use
  Company Number: NL-ASTRAZENECA-2009SE28945

PATIENT
  Age: 23185 Day
  Sex: Female
  Weight: 88 kg

DRUGS (6)
  1. ARIMIDEX [Suspect]
     Indication: BREAST CANCER
     Route: 048
     Dates: start: 20070601
  2. FLOXAPEN [Suspect]
     Dosage: 4000 FOUR TIMES A DAY
     Route: 048
     Dates: start: 20090803, end: 20090814
  3. FRAXIPARINE [Suspect]
     Route: 058
     Dates: start: 20090803, end: 20090810
  4. FENPROCOUMON [Concomitant]
     Indication: ANTICOAGULANT THERAPY
     Route: 048
     Dates: start: 20090803, end: 20090814
  5. ALENDRONINEZUR [Concomitant]
     Indication: OSTEOPOROSIS
     Route: 048
     Dates: start: 20090928
  6. CALCIOPEN [Concomitant]
     Indication: OSTEOPOROSIS
     Route: 048
     Dates: start: 20090126, end: 20090808

REACTIONS (2)
  - ABSCESS [None]
  - WRIST FRACTURE [None]
